FAERS Safety Report 8680606 (Version 2)
Quarter: 2013Q1

REPORT INFORMATION
  Report Type: Spontaneous
  Country: US (occurrence: None)
  Receive Date: 20120709
  Receipt Date: 20130122
  Transmission Date: 20140127
  Serious: Yes (Hospitalization)
  Sender: FDA-Public Use
  Company Number: 2012-145

PATIENT
  Age: 61 Year
  Sex: Male
  Weight: 91 kg

DRUGS (12)
  1. PRIALT [Suspect]
     Indication: PAIN
     Dosage: 0.04-0.0625 UG, ONCE/HOUR, INTRATHECAL
     Dates: start: 201111, end: 201206
  2. PRIALT [Suspect]
     Indication: BACK PAIN
     Dosage: 0.04-0.0625 UG, ONCE/HOUR, INTRATHECAL
     Dates: start: 201111, end: 201206
  3. CLONIDINE TRANSDERMAL SYSTEM [Suspect]
     Dosage: UNK UG, ONCE/HOUR, INTRATHECAL
     Route: 037
  4. SUFENTANIL CITRATE [Suspect]
     Dosage: UNK G, ONCE/HOUR, INTRATHECAL
     Route: 037
  5. TRAZDONE [Concomitant]
  6. AMITRIPTYLINE [Concomitant]
  7. ENALAPRIL [Concomitant]
  8. ATENOLOL [Concomitant]
  9. NEURONTIN [Concomitant]
  10. ROXICODONE [Concomitant]
  11. LANTUS [Concomitant]
  12. NOVOLOG [Concomitant]

REACTIONS (16)
  - Pneumonia [None]
  - Mental status changes [None]
  - Fall [None]
  - Back pain [None]
  - Fatigue [None]
  - Sepsis [None]
  - Confusional state [None]
  - Asthenia [None]
  - Dysstasia [None]
  - Renal failure acute [None]
  - Refusal of treatment by patient [None]
  - Osteomyelitis [None]
  - Post procedural complication [None]
  - Aspiration [None]
  - Dehydration [None]
  - Drug level increased [None]
